FAERS Safety Report 7831406-6 (Version None)
Quarter: 2011Q4

REPORT INFORMATION
  Report Type: 
  Country: None (occurrence: None)
  Receive Date: 20111021
  Receipt Date: 20111017
  Transmission Date: 20120403
  Serious: No
  Sender: FDA-Public Use
  Company Number: US-TEVA-305466USA

PATIENT
  Sex: Female
  Weight: 56.75 kg

DRUGS (2)
  1. NUVARING [Suspect]
     Indication: CONTRACEPTION
     Route: 067
     Dates: start: 20110501
  2. PLAN B ONE-STEP [Suspect]
     Route: 048
     Dates: start: 20111007

REACTIONS (3)
  - NAUSEA [None]
  - METRORRHAGIA [None]
  - DYSMENORRHOEA [None]
